FAERS Safety Report 5514869-0 (Version None)
Quarter: 2007Q4

REPORT INFORMATION
  Report Type: 
  Country: None (occurrence: None)
  Receive Date: 20071113
  Receipt Date: 20071102
  Transmission Date: 20080405
  Serious: Yes (Life-Threatening, Hospitalization, Other)
  Sender: FDA-Public Use
  Company Number: US-ELI_LILLY_AND_COMPANY-US200711000610

PATIENT
  Sex: Male
  Weight: 74.83 kg

DRUGS (9)
  1. BYETTA [Suspect]
     Dosage: 5 UG, 2/D
     Route: 065
  2. AVANDIA [Concomitant]
     Dosage: 4 MG, 2/D
     Route: 048
     Dates: start: 20040101, end: 20070101
  3. REPAGLINIDE [Concomitant]
     Dates: end: 20070101
  4. METFORMIN HCL [Concomitant]
  5. TENORMIN [Concomitant]
  6. LIPITOR [Concomitant]
  7. ASPIRIN [Concomitant]
  8. AVANDAMET [Concomitant]
  9. RAMIPRIL [Concomitant]

REACTIONS (8)
  - BENIGN PROSTATIC HYPERPLASIA [None]
  - BLOOD THYROID STIMULATING HORMONE INCREASED [None]
  - CARDIAC ARREST [None]
  - CATHETERISATION CARDIAC [None]
  - CORONARY ARTERY OCCLUSION [None]
  - EJECTION FRACTION DECREASED [None]
  - NAUSEA [None]
  - NOCTURIA [None]
